FAERS Safety Report 13913923 (Version 1)
Quarter: 2017Q3

REPORT INFORMATION
  Report Type: Spontaneous
  Country: US (occurrence: None)
  Receive Date: 20170827
  Receipt Date: 20170827
  Transmission Date: 20171127
  Serious: Yes (Other)
  Sender: FDA-Public Use
  Company Number: None

PATIENT
  Age: 55 Year
  Sex: Female

DRUGS (1)
  1. XELJANZ [Suspect]
     Active Substance: TOFACITINIB CITRATE
     Indication: PRODUCT USED FOR UNKNOWN INDICATION
     Dosage: 1 CAP QD PO
     Route: 048
     Dates: start: 20161228

REACTIONS (4)
  - Blood pressure increased [None]
  - Inability to afford medication [None]
  - Peripheral swelling [None]
  - Treatment noncompliance [None]

NARRATIVE: CASE EVENT DATE: 20170717
